FAERS Safety Report 11029740 (Version 1)
Quarter: 2015Q2

REPORT INFORMATION
  Report Type: Spontaneous
  Country: US (occurrence: None)
  Receive Date: 20150414
  Receipt Date: 20150414
  Transmission Date: 20150821
  Serious: No
  Sender: FDA-Public Use
  Company Number: None

PATIENT
  Age: 68 Year
  Sex: Female

DRUGS (2)
  1. HUMIRA [Suspect]
     Active Substance: ADALIMUMAB
     Indication: RHEUMATOID ARTHRITIS
     Dosage: 40MG, Q2W, SQ
     Route: 058
     Dates: start: 20120406, end: 20150319
  2. PIOGLITAZONE 30MG [Suspect]
     Active Substance: PIOGLITAZONE
     Indication: DIABETES MELLITUS
     Dosage: 30MG, DAILY, PO
     Route: 048

REACTIONS (2)
  - Cardiac failure congestive [None]
  - Pleural effusion [None]

NARRATIVE: CASE EVENT DATE: 20150319
